FAERS Safety Report 19275567 (Version 1)
Quarter: 2021Q2

REPORT INFORMATION
  Report Type: Spontaneous
  Country: US (occurrence: US)
  Receive Date: 20210519
  Receipt Date: 20210519
  Transmission Date: 20210717
  Serious: No
  Sender: FDA-Public Use
  Company Number: US-PFIZER INC-2021408201

PATIENT
  Age: 79 Year
  Sex: Female
  Weight: 65.77 kg

DRUGS (1)
  1. METHOTREXATE SODIUM. [Suspect]
     Active Substance: METHOTREXATE SODIUM
     Dosage: 25 MG/ML (50MG/2ML (25MG/ML) SINGLE DOSE VIAL 5 CT)

REACTIONS (2)
  - Drug ineffective [Unknown]
  - Arthropathy [Unknown]
